FAERS Safety Report 5046016-6 (Version None)
Quarter: 2006Q2

REPORT INFORMATION
  Report Type: 
  Country: None (occurrence: None)
  Receive Date: 20060629
  Receipt Date: 20060620
  Transmission Date: 20061013
  Serious: Yes (Other)
  Sender: FDA-Public Use
  Company Number: 2006043070

PATIENT
  Age: 80 Year
  Sex: Female

DRUGS (1)
  1. LIPITOR [Suspect]
     Indication: BLOOD CHOLESTEROL INCREASED
     Dosage: 10 MG (1 IN 1 D), ORAL
     Route: 048
     Dates: start: 20030401

REACTIONS (11)
  - ARTHRITIS [None]
  - BLINDNESS [None]
  - CATARACT [None]
  - ECONOMIC PROBLEM [None]
  - MACULAR DEGENERATION [None]
  - MOBILITY DECREASED [None]
  - MUSCLE DISORDER [None]
  - PHARYNX DISCOMFORT [None]
  - POST PROCEDURAL COMPLICATION [None]
  - VISUAL ACUITY REDUCED [None]
  - WRONG TECHNIQUE IN DRUG USAGE PROCESS [None]
